FAERS Safety Report 7517377-0 (Version None)
Quarter: 2011Q2

REPORT INFORMATION
  Report Type: 
  Country: None (occurrence: None)
  Receive Date: 20110601
  Receipt Date: 20101029
  Transmission Date: 20111010
  Serious: No
  Sender: FDA-Public Use
  Company Number: US-BAYER-201039210NA

PATIENT
  Sex: Female

DRUGS (4)
  1. SUDAFED 12 HOUR [Concomitant]
  2. SINGULAIR [Concomitant]
  3. CETIRIZINE HYDROCHLORIDE [Concomitant]
  4. AVELOX [Suspect]
     Indication: SINUSITIS
     Dosage: 400 MG, QD
     Route: 048
     Dates: start: 20101028

REACTIONS (2)
  - EYE PRURITUS [None]
  - OCULAR HYPERAEMIA [None]
